FAERS Safety Report 4892163-9 (Version None)
Quarter: 2006Q1

REPORT INFORMATION
  Report Type: 
  Country: None (occurrence: None)
  Receive Date: 20060124
  Receipt Date: 20060110
  Transmission Date: 20060701
  Serious: Yes (Death, Hospitalization, Other)
  Sender: FDA-Public Use
  Company Number: US-2005-003474

PATIENT
  Age: 83 Year
  Sex: Female
  Weight: 53 kg

DRUGS (10)
  1. CAMPATH [Suspect]
     Indication: CHRONIC LYMPHOCYTIC LEUKAEMIA
     Dosage: SEE IMAGE
     Route: 058
     Dates: start: 20050131, end: 20050131
  2. CAMPATH [Suspect]
     Indication: CHRONIC LYMPHOCYTIC LEUKAEMIA
     Dosage: SEE IMAGE
     Route: 058
     Dates: start: 20050202, end: 20050202
  3. CAMPATH [Suspect]
     Indication: CHRONIC LYMPHOCYTIC LEUKAEMIA
     Dosage: SEE IMAGE
     Route: 058
     Dates: start: 20050204, end: 20050214
  4. LISINOPRIL W/HYDROCHLOROTHIAZIDE (LISINOPRIL) [Concomitant]
  5. MULTIPLE VITAMINS (RETINOL) [Concomitant]
  6. BENADRYL ^ACHE^ (DIPHENHYDRAMINE HYDROCHLORIDE, MENTHOL, AMMONIUM CHLO [Concomitant]
  7. TYLENOL [Concomitant]
  8. SULFAMETOXAZOL MED TRIMETOPRIM [Concomitant]
  9. FAMCICLOVIR (FAMCICLOVIR) [Concomitant]
  10. KYTRIL [Concomitant]

REACTIONS (16)
  - ANAEMIA [None]
  - ATROPHY [None]
  - CACHEXIA [None]
  - DECREASED APPETITE [None]
  - DEHYDRATION [None]
  - FAILURE TO THRIVE [None]
  - INAPPROPRIATE ANTIDIURETIC HORMONE SECRETION [None]
  - LYMPHOCYTIC LEUKAEMIA [None]
  - MALIGNANT NEOPLASM PROGRESSION [None]
  - MALNUTRITION [None]
  - NAUSEA [None]
  - PNEUMONIA [None]
  - PULMONARY MASS [None]
  - REFUSAL OF TREATMENT BY PATIENT [None]
  - SINUS DISORDER [None]
  - VOMITING [None]
